FAERS Safety Report 18572213 (Version 1)
Quarter: 2020Q4

REPORT INFORMATION
  Report Type: Spontaneous
  Country: JP (occurrence: JP)
  Receive Date: 20201202
  Receipt Date: 20201202
  Transmission Date: 20210114
  Serious: Yes (Hospitalization)
  Sender: FDA-Public Use
  Company Number: JP-PURDUE-USA-2020-0180384

PATIENT
  Age: 83 Year
  Sex: Male

DRUGS (1)
  1. BUTEC [Suspect]
     Active Substance: BUPRENORPHINE
     Indication: PAIN
     Dosage: 5 MCG, Q1H [STRENGTH 5 MG]
     Route: 062

REACTIONS (2)
  - Feeding disorder [Unknown]
  - Pneumonia [Unknown]
